FAERS Safety Report 4297777-5 (Version None)
Quarter: 2004Q1

REPORT INFORMATION
  Report Type: 
  Country: None (occurrence: None)
  Receive Date: 20040126
  Receipt Date: 20031104
  Transmission Date: 20041129
  Serious: No
  Sender: FDA-Public Use
  Company Number: USA031151620

PATIENT
  Age: 11 Year
  Sex: Male
  Weight: 43 kg

DRUGS (3)
  1. STRATTERA [Suspect]
     Indication: AUTISM
     Dosage: 60 MG/1 DAY
     Dates: start: 20030801
  2. VALPROIC ACID [Concomitant]
  3. FELBAMATE [Concomitant]

REACTIONS (3)
  - AGGRESSION [None]
  - DRUG INTERACTION [None]
  - FEELING ABNORMAL [None]
